FAERS Safety Report 12880911 (Version 3)
Quarter: 2017Q2

REPORT INFORMATION
  Report Type: Spontaneous
  Country: CA (occurrence: CA)
  Receive Date: 20161025
  Receipt Date: 20170517
  Transmission Date: 20170830
  Serious: Yes (Hospitalization, Other)
  Sender: FDA-Public Use
  Company Number: CA-PFIZER INC-2016493873

PATIENT
  Age: 8 Year
  Sex: Female

DRUGS (1)
  1. ADVIL [Suspect]
     Active Substance: IBUPROFEN
     Indication: MIGRAINE
     Dosage: 800 MG, 2X/DAY
     Dates: start: 2000, end: 2016

REACTIONS (8)
  - Vomiting [Recovered/Resolved]
  - Choking [Recovered/Resolved]
  - Foreign body [Unknown]
  - Product use in unapproved indication [Unknown]
  - Product taste abnormal [Unknown]
  - Malaise [Recovered/Resolved]
  - Overdose [Unknown]
  - Dysgeusia [Unknown]

NARRATIVE: CASE EVENT DATE: 2000
